FAERS Safety Report 7208601-2 (Version None)
Quarter: 2010Q4

REPORT INFORMATION
  Report Type: 
  Country: None (occurrence: None)
  Receive Date: 20101230
  Receipt Date: 20101230
  Transmission Date: 20110411
  Serious: Yes (Other)
  Sender: FDA-Public Use
  Company Number: None

PATIENT
  Age: 49 Year
  Sex: Male
  Weight: 95.2554 kg

DRUGS (5)
  1. NUVIGIL [Suspect]
     Indication: SOMNOLENCE
     Dosage: 250 MG 1 PER DAY 2 DAYS BUCCAL
     Route: 002
     Dates: start: 20101104
  2. NUVIGIL [Suspect]
     Indication: SOMNOLENCE
     Dosage: 250 MG 1 PER DAY 2 DAYS BUCCAL
     Route: 002
     Dates: start: 20101223
  3. NUVIGIL [Suspect]
     Indication: SOMNOLENCE
     Dosage: 250 MG 1 PER DAY 2 DAYS BUCCAL
     Route: 002
     Dates: start: 20101224
  4. NUVIGIL [Suspect]
     Indication: SOMNOLENCE
     Dosage: 250 MG 1 PER DAY 2 DAYS BUCCAL
     Route: 002
     Dates: start: 20101225
  5. NUVIGIL [Suspect]
     Dosage: 75 MG 1 DAY BUCCAL
     Route: 002

REACTIONS (3)
  - BURNING SENSATION [None]
  - PRURITUS [None]
  - RASH [None]
